FAERS Safety Report 6279940-7 (Version None)
Quarter: 2009Q3

REPORT INFORMATION
  Report Type: 
  Country: None (occurrence: None)
  Receive Date: 20090723
  Receipt Date: 20090220
  Transmission Date: 20100115
  Serious: No
  Sender: FDA-Public Use
  Company Number: US-AMGEN-KDL335229

PATIENT
  Age: 80 Year
  Sex: Female

DRUGS (1)
  1. PROCRIT [Suspect]
     Indication: ANAEMIA
     Dates: end: 20081201

REACTIONS (1)
  - HAEMOGLOBIN DECREASED [None]
